FAERS Safety Report 9204589 (Version 2)
Quarter: 2013Q2

REPORT INFORMATION
  Report Type: Spontaneous
  Country: US (occurrence: US)
  Receive Date: 20130402
  Receipt Date: 20130423
  Transmission Date: 20140414
  Serious: Yes (Other)
  Sender: FDA-Public Use
  Company Number: US-PFIZER INC-2013100527

PATIENT
  Age: 53 Year
  Sex: Male

DRUGS (11)
  1. VIAGRA [Suspect]
     Dosage: 100 MG, AS NEEDED
     Route: 048
  2. XANAX [Concomitant]
     Dosage: 0.25 MG, AS NEEDED
     Route: 048
  3. NORVASC [Concomitant]
     Dosage: 10 MG, 1X/DAY
     Route: 048
  4. ASPIRIN [Concomitant]
     Dosage: 81 MG, 1X/DAY
     Route: 048
  5. LIPITOR [Concomitant]
     Dosage: 40 MG, 1X/DAY
     Route: 048
  6. CATAPRES [Concomitant]
     Dosage: 0.1 MG, AS NEEDED
     Route: 048
  7. PLAVIX [Concomitant]
     Dosage: 75 MG, 1X/DAY
     Route: 048
  8. ADVIL [Concomitant]
     Dosage: 1-2 CAPS EVERY 8 HOURS AS NEEDED
     Route: 048
  9. TOPROL XL [Concomitant]
     Dosage: 50 MG, 1X/DAY
     Route: 048
  10. PERCOCET [Concomitant]
     Dosage: 1 TABLET (10/325 MG) EVERY 4 HOURS AS NEEDED
     Route: 048
  11. ZANAFLEX [Concomitant]
     Dosage: 2MG EVERY 6 HOURS AS NEEDED
     Route: 048

REACTIONS (1)
  - Chest pain [Unknown]
